FAERS Safety Report 10029911 (Version 1)
Quarter: 2014Q1

REPORT INFORMATION
  Report Type: Spontaneous
  Country: US (occurrence: None)
  Receive Date: 20140306
  Receipt Date: 20140306
  Transmission Date: 20141002
  Serious: Yes (Hospitalization)
  Sender: FDA-Public Use
  Company Number: 163-21880-12090882

PATIENT
  Age: 29 Year
  Sex: Female

DRUGS (6)
  1. REVLIMID [Suspect]
     Indication: MYELOID LEUKAEMIA
     Dosage: 50 MG, 2 IN 1 D, PO
     Route: 048
     Dates: start: 201202
  2. DAPSONE [Concomitant]
  3. LISINOPRIL (LISINOPRIL) [Concomitant]
  4. VORICONAZOLE (VORICONAZOLE) [Concomitant]
  5. VALACYCLOVIR [Concomitant]
  6. PRILOSEC (OMEPRAZOLE) [Concomitant]

REACTIONS (2)
  - Pneumonia [None]
  - Lymphadenitis [None]
